FAERS Safety Report 6789749-3 (Version None)
Quarter: 2010Q2

REPORT INFORMATION
  Report Type: 
  Country: None (occurrence: None)
  Receive Date: 20100624
  Receipt Date: 20100615
  Transmission Date: 20101027
  Serious: Yes (Life-Threatening, Hospitalization)
  Sender: FDA-Public Use
  Company Number: US-KINGPHARMUSA00001-K201000758

PATIENT
  Age: 77 Year
  Sex: Male

DRUGS (5)
  1. EMBEDA [Suspect]
     Indication: PAIN
     Dosage: 150 MG, SINGLE
     Dates: start: 20100607, end: 20100607
  2. EMBEDA [Suspect]
     Dosage: 20 MG, BID
  3. EMBEDA [Suspect]
     Dosage: 50 MG EVERY AM; 30 MG EVERY PM
  4. EMBEDA [Suspect]
     Dosage: 40 MG, BID
  5. BENZODIAZEPINE DERIVATIVES [Concomitant]
     Dosage: UNK

REACTIONS (4)
  - HOSPITALISATION [None]
  - OVERDOSE [None]
  - PNEUMONIA [None]
  - UNRESPONSIVE TO STIMULI [None]
